FAERS Safety Report 19518001 (Version 1)
Quarter: 2021Q3

REPORT INFORMATION
  Report Type: Spontaneous
  Country: US (occurrence: US)
  Receive Date: 20210712
  Receipt Date: 20210712
  Transmission Date: 20211014
  Serious: Yes (Other)
  Sender: FDA-Public Use
  Company Number: US-GLENMARK PHARMACEUTICALS-2021GMK055134

PATIENT

DRUGS (2)
  1. RANITIDINE HYDROCHLORIDE. [Suspect]
     Active Substance: RANITIDINE HYDROCHLORIDE
     Indication: DYSPEPSIA
     Dosage: UNK
     Dates: start: 201412, end: 201807
  2. RANITIDINE HYDROCHLORIDE. [Suspect]
     Active Substance: RANITIDINE HYDROCHLORIDE
     Indication: DERMATITIS

REACTIONS (3)
  - Small intestine carcinoma [Unknown]
  - Gastric cancer [Unknown]
  - Colon cancer [Unknown]

NARRATIVE: CASE EVENT DATE: 20180101
